FAERS Safety Report 10306150 (Version 1)
Quarter: 2014Q3

REPORT INFORMATION
  Report Type: Spontaneous
  Country: GB (occurrence: GB)
  Receive Date: 20140715
  Receipt Date: 20140715
  Transmission Date: 20150326
  Serious: Yes (Other)
  Sender: FDA-Public Use
  Company Number: GB-TEVA-493475ISR

PATIENT
  Sex: Female

DRUGS (17)
  1. CYCLOPHOSPHAMIDE. [Interacting]
     Active Substance: CYCLOPHOSPHAMIDE
     Indication: DIFFUSE LARGE B-CELL LYMPHOMA
     Dates: start: 20140620
  2. GABAPENTIN. [Concomitant]
     Active Substance: GABAPENTIN
  3. TACROLIMUS. [Interacting]
     Active Substance: TACROLIMUS
     Dosage: 2 MILLIGRAM DAILY; REDUCED TO 1MG BID IN THE MEANTIME
  4. PREDNISOLONE. [Interacting]
     Active Substance: PREDNISOLONE
     Indication: PREMEDICATION
     Dosage: 80 MG, UNK
     Dates: start: 20140616
  5. ONDANSETRON [Concomitant]
     Active Substance: ONDANSETRON
  6. RITUXIMAB [Interacting]
     Active Substance: RITUXIMAB
     Indication: DIFFUSE LARGE B-CELL LYMPHOMA
     Dates: start: 20140620
  7. ALFACALCIDOL [Concomitant]
     Active Substance: ALFACALCIDOL
  8. OMEPRAZOLE. [Concomitant]
     Active Substance: OMEPRAZOLE
  9. OXYCONTIN [Concomitant]
     Active Substance: OXYCODONE HYDROCHLORIDE
  10. PARACETAMOL [Concomitant]
     Active Substance: ACETAMINOPHEN
  11. PREDNISOLONE. [Interacting]
     Active Substance: PREDNISOLONE
     Dosage: LATER AT A MAINTENANCE DOSE OF 5 MG, UNK
  12. TACROLIMUS. [Interacting]
     Active Substance: TACROLIMUS
     Dosage: 3 MILLIGRAM DAILY; REDUCED FROM 2MG BID TO 1.5MG BID
     Dates: start: 20040618
  13. DALTEPARIN [Concomitant]
     Active Substance: DALTEPARIN
     Indication: PROPHYLAXIS
  14. AZATHIOPRINE. [Suspect]
     Active Substance: AZATHIOPRINE
     Dates: end: 20140620
  15. TACROLIMUS. [Interacting]
     Active Substance: TACROLIMUS
     Indication: RENAL TRANSPLANT
     Dosage: 4 MILLIGRAM DAILY; 2 MG, BID
  16. VINCRISTINE [Interacting]
     Active Substance: VINCRISTINE
     Indication: DIFFUSE LARGE B-CELL LYMPHOMA
     Dates: start: 20140620
  17. CYCLIZINE [Concomitant]
     Active Substance: CYCLIZINE

REACTIONS (2)
  - Drug interaction [Unknown]
  - Immunosuppressant drug level increased [Unknown]
